FAERS Safety Report 7827095-7 (Version None)
Quarter: 2011Q4

REPORT INFORMATION
  Report Type: 
  Country: None (occurrence: None)
  Receive Date: 20111018
  Receipt Date: 20111006
  Transmission Date: 20120403
  Serious: Yes (Death, Hospitalization)
  Sender: FDA-Public Use
  Company Number: 1000021545

PATIENT
  Age: 89 Year
  Sex: Male
  Weight: 72 kg

DRUGS (4)
  1. ROFLUMILAST (ROFLUMILAST) (TABLETS) [Suspect]
     Indication: CHRONIC OBSTRUCTIVE PULMONARY DISEASE
     Dosage: 500 MCG (500 MCG), ORAL
     Route: 048
     Dates: start: 20110401
  2. DELIX (RAMIPRIL) (RAMIPRIL) [Concomitant]
  3. VIANI (FLUTICASONE/SALMETEROL) (FLUTICASONE/SALMETEROL) [Concomitant]
  4. SALBUTAMOL (SALBUTAMOL) (SALBUTAMOL) [Concomitant]

REACTIONS (11)
  - CYANOSIS [None]
  - PULMONARY HYPERTENSION [None]
  - TRICUSPID VALVE INCOMPETENCE [None]
  - PLEURAL EFFUSION [None]
  - METASTATIC PAIN [None]
  - ATRIAL FIBRILLATION [None]
  - GASTRITIS EROSIVE [None]
  - HYPOTENSION [None]
  - RESPIRATORY FAILURE [None]
  - RENAL CYST [None]
  - GASTRIC HAEMORRHAGE [None]
